FAERS Safety Report 11472811 (Version 2)
Quarter: 2015Q3

REPORT INFORMATION
  Report Type: Spontaneous
  Country: US (occurrence: US)
  Receive Date: 20150908
  Receipt Date: 20150915
  Transmission Date: 20151125
  Serious: Yes (Life-Threatening, Other)
  Sender: FDA-Public Use
  Company Number: US-PFIZER INC-2015297143

PATIENT
  Age: 46 Year
  Sex: Male

DRUGS (1)
  1. SULFAMETHOXAZOLE/TRIMETHOPRIM [Suspect]
     Active Substance: SULFAMETHOXAZOLE\TRIMETHOPRIM
     Indication: FOLLICULITIS
     Dosage: UNK

REACTIONS (4)
  - Stevens-Johnson syndrome [Recovering/Resolving]
  - Renal failure [Recovered/Resolved]
  - Meningitis aseptic [Recovering/Resolving]
  - Shock [Recovering/Resolving]
